FAERS Safety Report 23965180 (Version 1)
Quarter: 2024Q2

REPORT INFORMATION
  Report Type: Spontaneous
  Country: US (occurrence: US)
  Receive Date: 20240612
  Receipt Date: 20240612
  Transmission Date: 20240715
  Serious: No
  Sender: FDA-Public Use
  Company Number: US-IPSEN Group, Research and Development-2024-11220

PATIENT
  Age: 62 Year
  Sex: Female

DRUGS (9)
  1. DYSPORT [Suspect]
     Active Substance: ABOBOTULINUMTOXINA
     Indication: Skin wrinkling
     Route: 030
     Dates: start: 20240514, end: 20240514
  2. LEVOTHYROXINE [Concomitant]
     Active Substance: LEVOTHYROXINE\LEVOTHYROXINE SODIUM
     Dosage: ONCE DAILY
  3. VITAMIN D2 [Concomitant]
     Active Substance: ERGOCALCIFEROL
     Dates: start: 20240403
  4. METOPROLOL [Concomitant]
     Active Substance: METOPROLOL
     Dosage: HALF TABLET QD
  5. FLUOXETINE [Concomitant]
     Active Substance: FLUOXETINE HYDROCHLORIDE
     Dosage: QD
  6. ROSUVASTATIN [Concomitant]
     Active Substance: ROSUVASTATIN
     Dosage: QD
  7. ASPIRIN [Concomitant]
     Active Substance: ASPIRIN
     Dosage: QD
  8. BIOTIN [Concomitant]
     Active Substance: BIOTIN
     Dosage: 2 TABLETS QD
  9. LORAZEPAM [Concomitant]
     Active Substance: LORAZEPAM
     Dosage: QD AS NEEDED

REACTIONS (3)
  - Swelling of eyelid [Not Recovered/Not Resolved]
  - Rash [Not Recovered/Not Resolved]
  - Papule [Not Recovered/Not Resolved]

NARRATIVE: CASE EVENT DATE: 20240516
